FAERS Safety Report 10028810 (Version 1)
Quarter: 2014Q1

REPORT INFORMATION
  Report Type: Spontaneous
  Country: PT (occurrence: PT)
  Receive Date: 20140321
  Receipt Date: 20140321
  Transmission Date: 20141002
  Serious: Yes (Disabling)
  Sender: FDA-Public Use
  Company Number: PT-MYLANLABS-2014S1005433

PATIENT
  Age: 45 Year
  Sex: Male
  Weight: 73 kg

DRUGS (4)
  1. FLUOXETINA MYLAN [Suspect]
     Indication: AFFECTIVE DISORDER
     Route: 048
     Dates: start: 20140106, end: 20140121
  2. QUETIAPINA RATIOPHARM [Suspect]
     Indication: AFFECTIVE DISORDER
     Route: 048
     Dates: start: 20140106, end: 20140121
  3. FLUOXETINA [Concomitant]
     Indication: AFFECTIVE DISORDER
     Route: 048
  4. QUETIAPINA [Concomitant]
     Indication: AFFECTIVE DISORDER
     Route: 048

REACTIONS (4)
  - Anxiety [Recovering/Resolving]
  - Drug effect decreased [Recovering/Resolving]
  - Skin disorder [Recovering/Resolving]
  - Product substitution issue [Unknown]
